FAERS Safety Report 11322383 (Version 1)
Quarter: 2015Q3

REPORT INFORMATION
  Report Type: Spontaneous
  Country: US (occurrence: None)
  Receive Date: 20150728
  Receipt Date: 20150728
  Transmission Date: 20151125
  Serious: Yes (Other)
  Sender: FDA-Public Use
  Company Number: 2015HINLIT0582

PATIENT
  Age: 71 Year
  Sex: Female

DRUGS (1)
  1. VALSARTAN (VALSARTAN) [Suspect]
     Active Substance: VALSARTAN
     Indication: PRODUCT USED FOR UNKNOWN INDICATION

REACTIONS (6)
  - Oedema peripheral [None]
  - Faecal incontinence [None]
  - Coeliac disease [None]
  - Gastrointestinal disorder [None]
  - Pleural effusion [None]
  - Weight decreased [None]
